FAERS Safety Report 9248907 (Version 1)
Quarter: 2013Q1

REPORT INFORMATION
  Report Type: Spontaneous
  Country: US (occurrence: None)
  Receive Date: 20130305
  Receipt Date: 20130305
  Transmission Date: 20140127
  Serious: Yes (Other)
  Sender: FDA-Public Use
  Company Number: 163-21880-12091796

PATIENT
  Age: 83 Year
  Sex: Female

DRUGS (24)
  1. REVLIMID [Suspect]
     Indication: PLASMA CELL MYELOMA
     Dosage: 5MG, 21 IN 21 D, PO
     Route: 048
     Dates: start: 20110614
  2. ACETYL L-CARNITINE (ACETYLCARNITINE) [Concomitant]
  3. ACYCLOVIR (ACICLOVIR) (ACICLOVIR) [Concomitant]
  4. ALPHA LIPOIC (THIOCTIC ACID) [Concomitant]
  5. CALCIUM (CALCIUM) (TABLETS) [Concomitant]
  6. CLA (LINOLEIC ACID) (CAPSULES) [Concomitant]
  7. COENZYME Q10 (UBIDECARENONE) [Concomitant]
  8. COUMADIN (WARFARIN SODIUM) (TABLETS) [Concomitant]
  9. ESSIAN HS (ESTRATEST HS) [Concomitant]
  10. FLAX OIL (LINSEED OIL) [Concomitant]
  11. FOLIC ACID (FOLIC ACID) [Concomitant]
  12. GLUCOSAMINE SULFATE (GLUCOSAMINE SULFATE) [Concomitant]
  13. HCTZ/TRIAM (DYAZIDE) [Concomitant]
  14. LUTEIN (XANTOFYL) [Concomitant]
  15. LYSINE (LYSINE) [Concomitant]
  16. MAGNESIUM (MAGNESIUM) [Concomitant]
  17. VITAMINS [Concomitant]
  18. POTASSIUM (POTASSIUM) [Concomitant]
  19. THYROID (THYROID) [Concomitant]
  20. VITAMIN C [Concomitant]
  21. VITAMIN D3 (COLECALCIFEROL) [Concomitant]
  22. VITAMIN E (TOCOPHEROL) [Concomitant]
  23. ZOMETA (ZOLEDRONIC ACID) [Concomitant]
  24. ESSENTIAL MEGA (TABLETS) [Concomitant]

REACTIONS (2)
  - Muscle spasms [None]
  - Muscle tightness [None]
